FAERS Safety Report 5228353-5 (Version None)
Quarter: 2007Q1

REPORT INFORMATION
  Report Type: 
  Country: None (occurrence: None)
  Receive Date: 20070131
  Receipt Date: 20070131
  Transmission Date: 20070707
  Serious: Yes (Life-Threatening, Hospitalization, Disabling, Other)
  Sender: FDA-Public Use
  Company Number: None

PATIENT
  Age: 66 Year
  Sex: Male
  Weight: 97.977 kg

DRUGS (2)
  1. NIASPAN [Suspect]
     Indication: BLOOD CHOLESTEROL
     Dosage: 1 TB (1000 MG) DAILY ORAL
     Route: 048
     Dates: start: 20061031, end: 20061231
  2. NIASPAN [Suspect]
     Dosage: 1 TB (500 MG) DAILY ORAL
     Route: 048
     Dates: start: 20061218, end: 20061231

REACTIONS (5)
  - AMNESIA [None]
  - PANCREATITIS NECROTISING [None]
  - RENAL FAILURE [None]
  - RESPIRATORY DISTRESS [None]
  - SEPSIS [None]
